FAERS Safety Report 5683479-7 (Version None)
Quarter: 2008Q1

REPORT INFORMATION
  Report Type: 
  Country: None (occurrence: None)
  Receive Date: 20080326
  Receipt Date: 20080312
  Transmission Date: 20080703
  Serious: Yes (Hospitalization)
  Sender: FDA-Public Use
  Company Number: S08-SWE-01137-01

PATIENT
  Age: 86 Year
  Sex: Female

DRUGS (13)
  1. MEMANTINE HCL [Suspect]
     Indication: DEMENTIA ALZHEIMER'S TYPE
     Dosage: 10 MG QD PO
     Route: 048
     Dates: start: 20080128, end: 20080204
  2. MEMANTINE HCL [Suspect]
     Indication: DEMENTIA ALZHEIMER'S TYPE
     Dosage: 5 MG QD PO
     Route: 048
     Dates: start: 20080121, end: 20080127
  3. HEMINEVRIN (CLOMETHIAZOLE EDISILATE) [Concomitant]
  4. XALATAN [Concomitant]
  5. MIRTAZAPINE [Concomitant]
  6. PROPAVAN (PROPIOMAZINE MALEATE) [Concomitant]
  7. HALDOL SOLUTAB [Concomitant]
  8. KAJOS (POTASSIUM CITRATE) [Concomitant]
  9. DIAZEPAM [Concomitant]
  10. OXASCAND (OXAZEPAM) [Concomitant]
  11. IMOVANE (ZOPICLONE) [Concomitant]
  12. TRIOBE [Concomitant]
  13. ACTAVIS (LORACARBEF) [Concomitant]

REACTIONS (3)
  - DEHYDRATION [None]
  - DIARRHOEA [None]
  - ELECTROLYTE IMBALANCE [None]
